FAERS Safety Report 23891556 (Version 2)
Quarter: 2024Q2

REPORT INFORMATION
  Report Type: Spontaneous
  Country: DE (occurrence: DE)
  Receive Date: 20240524
  Receipt Date: 20240528
  Transmission Date: 20240716
  Serious: Yes (Hospitalization, Other)
  Sender: FDA-Public Use
  Company Number: DE-CELLTRION INC.-2024DE011735

PATIENT

DRUGS (18)
  1. BEVACIZUMAB [Suspect]
     Active Substance: BEVACIZUMAB
     Indication: Hepatocellular carcinoma
     Dosage: UNK
     Route: 065
     Dates: start: 20210617
  2. BEVACIZUMAB [Suspect]
     Active Substance: BEVACIZUMAB
     Dosage: UNK
     Route: 065
     Dates: start: 20220330
  3. ATEZOLIZUMAB [Suspect]
     Active Substance: ATEZOLIZUMAB
     Indication: Hepatocellular carcinoma
     Dosage: UNK
     Route: 042
     Dates: start: 20210617
  4. ATEZOLIZUMAB [Suspect]
     Active Substance: ATEZOLIZUMAB
     Dosage: UNK
     Route: 042
     Dates: start: 20220330
  5. DAKLINZA [Suspect]
     Active Substance: DACLATASVIR
     Indication: Chronic hepatitis C
     Dosage: 60 MG, 1X/DAY
     Route: 048
     Dates: start: 20150702, end: 20150924
  6. SOVALDI [Suspect]
     Active Substance: SOFOSBUVIR
     Indication: Chronic hepatitis C
     Dosage: 400 MG, 1X/DAY
     Route: 048
     Dates: start: 20150702, end: 20150924
  7. CHOLECALCIFEROL [Concomitant]
     Active Substance: CHOLECALCIFEROL
     Dosage: 2000 IU, WEEKLY
  8. GELATIN [Concomitant]
     Active Substance: GELATIN
     Dosage: UNK
     Dates: start: 20150625
  9. HYALURONIC ACID [Concomitant]
     Active Substance: HYALURONIC ACID
     Dosage: 30 MG
     Dates: start: 20150201
  10. LENVATINIB [Concomitant]
     Active Substance: LENVATINIB
     Dosage: 8 MG
     Dates: start: 20200508
  11. MCP [Concomitant]
     Active Substance: METOCLOPRAMIDE HYDROCHLORIDE
     Dosage: 10 MG, 3X/DAY
     Dates: start: 202106
  12. MOVICOL [Concomitant]
     Active Substance: POLYETHYLENE GLYCOL 3350\POTASSIUM CHLORIDE\SODIUM BICARBONATE\SODIUM CHLORIDE
     Dosage: UNK
     Dates: start: 20150716
  13. FISH OIL [Concomitant]
     Active Substance: FISH OIL
     Dosage: 1000 MG
  14. SORAFENIB [Concomitant]
     Active Substance: SORAFENIB
     Dosage: UNK
     Dates: start: 202104, end: 202106
  15. TORSEMIDE [Concomitant]
     Active Substance: TORSEMIDE
     Dosage: 10 MG
     Dates: start: 202106
  16. TORSEMIDE [Concomitant]
     Active Substance: TORSEMIDE
     Dosage: 10 MG
  17. TRAUMEEL [ACHILLEA MILLEFOLIUM;ACONITUM NAPELLUS;ARNICA MONTANA;ATROPA [Concomitant]
     Dosage: 2 DF EVERY 4 WEEKS
     Dates: start: 20150521, end: 20150702
  18. DICLOFENAC [Concomitant]
     Active Substance: DICLOFENAC
     Dosage: UNK

REACTIONS (7)
  - Varices oesophageal [Unknown]
  - Colitis [Recovered/Resolved]
  - Portal hypertensive gastropathy [Unknown]
  - Gastrointestinal haemorrhage [Recovered/Resolved]
  - Haemoglobin decreased [Recovering/Resolving]
  - Anaemia [Recovering/Resolving]
  - Off label use [Unknown]

NARRATIVE: CASE EVENT DATE: 20220404
